FAERS Safety Report 23604686 (Version 1)
Quarter: 2024Q1

REPORT INFORMATION
  Report Type: Spontaneous
  Country: DE (occurrence: None)
  Receive Date: 20240307
  Receipt Date: 20240307
  Transmission Date: 20240409
  Serious: Yes (Other)
  Sender: FDA-Public Use
  Company Number: DE-ROCHE-3517796

PATIENT
  Age: 17 Year
  Sex: Male

DRUGS (1)
  1. EMICIZUMAB [Suspect]
     Active Substance: EMICIZUMAB
     Indication: Factor VIII deficiency
     Route: 058

REACTIONS (4)
  - Traumatic intracranial haemorrhage [Unknown]
  - Cerebellar haemorrhage [Unknown]
  - Asthenia [Unknown]
  - Tremor [Unknown]
